FAERS Safety Report 24732701 (Version 2)
Quarter: 2025Q3

REPORT INFORMATION
  Report Type: Report from Study
  Country: US (occurrence: US)
  Receive Date: 20241213
  Receipt Date: 20250803
  Transmission Date: 20251021
  Serious: Yes (Death, Other)
  Sender: ALEXION PHARMACEUTICALS
  Company Number: US-AstraZeneca-CH-00621342A

PATIENT
  Age: 84 Year
  Sex: Male

DRUGS (2)
  1. ULTOMIRIS [Suspect]
     Active Substance: RAVULIZUMAB-CWVZ
     Indication: Myasthenia gravis
     Route: 065
     Dates: start: 20230406, end: 20230406
  2. ULTOMIRIS [Suspect]
     Active Substance: RAVULIZUMAB-CWVZ
     Dosage: 3400 MILLIGRAM, Q8W
     Route: 065
     Dates: end: 20240125

REACTIONS (1)
  - Death [Fatal]

NARRATIVE: CASE EVENT DATE: 20240328
